FAERS Safety Report 24863078 (Version 3)
Quarter: 2025Q2

REPORT INFORMATION
  Report Type: Spontaneous
  Country: RU (occurrence: RU)
  Receive Date: 20250120
  Receipt Date: 20250404
  Transmission Date: 20250716
  Serious: No
  Sender: PFIZER
  Company Number: RU-PFIZER INC-PV202500004796

PATIENT
  Sex: Female

DRUGS (2)
  1. FRAGMIN [Suspect]
     Active Substance: DALTEPARIN SODIUM
  2. FRAGMIN [Suspect]
     Active Substance: DALTEPARIN SODIUM

REACTIONS (2)
  - Needle issue [Unknown]
  - Injection site bruising [Unknown]
